FAERS Safety Report 15716764 (Version 6)
Quarter: 2019Q1

REPORT INFORMATION
  Report Type: Report from Study
  Country: CO (occurrence: CO)
  Receive Date: 20181213
  Receipt Date: 20190315
  Transmission Date: 20190417
  Serious: Yes (Hospitalization, Other)
  Sender: FDA-Public Use
  Company Number: CO-ACTELION-A-CH2018-183552

PATIENT
  Age: 64 Year
  Sex: Female
  Weight: 88 kg

DRUGS (4)
  1. BOSENTAN. [Concomitant]
     Active Substance: BOSENTAN
  2. RIOCIGUAT. [Concomitant]
     Active Substance: RIOCIGUAT
     Dosage: UNK
     Route: 048
  3. SILDENAFIL. [Concomitant]
     Active Substance: SILDENAFIL
     Dosage: UNK
     Route: 048
  4. TRACLEER [Suspect]
     Active Substance: BOSENTAN
     Indication: PULMONARY ARTERIAL HYPERTENSION
     Dosage: 125 MG, BID
     Route: 048
     Dates: start: 20150622, end: 201901

REACTIONS (16)
  - Cataract operation [Not Recovered/Not Resolved]
  - Tooth infection [Not Recovered/Not Resolved]
  - Malaise [Not Recovered/Not Resolved]
  - Fatigue [Unknown]
  - Tooth abscess [Not Recovered/Not Resolved]
  - Catheterisation cardiac [Not Recovered/Not Resolved]
  - Anxiety [Not Recovered/Not Resolved]
  - Burning sensation [Not Recovered/Not Resolved]
  - Chest pain [Not Recovered/Not Resolved]
  - Pain [Not Recovered/Not Resolved]
  - Dental operation [Not Recovered/Not Resolved]
  - Bone disorder [Not Recovered/Not Resolved]
  - Vomiting [Not Recovered/Not Resolved]
  - Eating disorder symptom [Unknown]
  - Cardiac disorder [Unknown]
  - Headache [Not Recovered/Not Resolved]

NARRATIVE: CASE EVENT DATE: 201805
